FAERS Safety Report 6901754-2 (Version None)
Quarter: 2010Q3

REPORT INFORMATION
  Report Type: 
  Country: None (occurrence: None)
  Receive Date: 20100803
  Receipt Date: 20080310
  Transmission Date: 20110219
  Serious: No
  Sender: FDA-Public Use
  Company Number: US-PFIZER INC-2008016596

PATIENT
  Sex: Female
  Weight: 81.6 kg

DRUGS (4)
  1. LYRICA [Suspect]
     Indication: NEUROPATHY PERIPHERAL
     Route: 048
     Dates: start: 20070101
  2. LYRICA [Suspect]
     Indication: NEURALGIA
  3. IBUPROFEN [Concomitant]
  4. VICOPROFEN [Concomitant]

REACTIONS (6)
  - BALANCE DISORDER [None]
  - DIZZINESS [None]
  - MIGRAINE [None]
  - OEDEMA PERIPHERAL [None]
  - VISION BLURRED [None]
  - WEIGHT INCREASED [None]
